FAERS Safety Report 6519784-1 (Version None)
Quarter: 2009Q4

REPORT INFORMATION
  Report Type: 
  Country: None (occurrence: None)
  Receive Date: 20091228
  Receipt Date: 20091228
  Transmission Date: 20100525
  Serious: Yes (Hospitalization)
  Sender: FDA-Public Use
  Company Number: None

PATIENT
  Age: 49 Year
  Sex: Male
  Weight: 55.6 kg

DRUGS (4)
  1. OXALIPLATIN [Suspect]
     Indication: OESOPHAGEAL ADENOCARCINOMA
     Dosage: 137.7 MG BIWEEKLY IV
     Route: 042
     Dates: start: 20090817, end: 20090924
  2. COLACE [Concomitant]
  3. DURAGESIC-100 [Concomitant]
  4. NEXIUM [Concomitant]

REACTIONS (2)
  - INTESTINAL OBSTRUCTION [None]
  - POST PROCEDURAL COMPLICATION [None]
